FAERS Safety Report 9415522 (Version 1)
Quarter: 2013Q3

REPORT INFORMATION
  Report Type: Spontaneous
  Country: CA (occurrence: CA)
  Receive Date: 20130723
  Receipt Date: 20130723
  Transmission Date: 20140515
  Serious: Yes (Other)
  Sender: FDA-Public Use
  Company Number: CA-SP-2013-07813

PATIENT
  Age: 45 Year
  Sex: Female
  Weight: 105 kg

DRUGS (1)
  1. TUBERSOL (5) [Suspect]
     Indication: TUBERCULIN TEST
     Route: 023

REACTIONS (5)
  - Hypoaesthesia eye [Recovered/Resolved]
  - Hypoaesthesia oral [Recovered/Resolved]
  - Paraesthesia [Recovered/Resolved]
  - Paraesthesia oral [Recovered/Resolved]
  - Swelling face [Recovered/Resolved]
